FAERS Safety Report 9263322 (Version 1)
Quarter: 2013Q1

REPORT INFORMATION
  Report Type: Spontaneous
  Country: US (occurrence: None)
  Receive Date: 20121212
  Receipt Date: 20121212
  Transmission Date: 20140127
  Serious: No
  Sender: FDA-Public Use
  Company Number: 1210USA01497

PATIENT
  Age: 55 Year
  Sex: Female

DRUGS (3)
  1. PEG-INTRON [Suspect]
     Indication: HEPATITIS C
     Dates: start: 20121014
  2. RIBAVIRIN [Suspect]
     Dosage: UNK, ORAL
     Dates: start: 20121014
  3. VICTRELIS [Suspect]
     Indication: HEPATITIS C
     Dosage: UNK, ORAL
     Route: 048
     Dates: start: 20121111

REACTIONS (4)
  - Mood swings [None]
  - Headache [None]
  - Arthralgia [None]
  - Nausea [None]
